FAERS Safety Report 8051570-6 (Version None)
Quarter: 2012Q1

REPORT INFORMATION
  Report Type: 
  Country: None (occurrence: None)
  Receive Date: 20120117
  Receipt Date: 20120104
  Transmission Date: 20120608
  Serious: Yes (Hospitalization)
  Sender: FDA-Public Use
  Company Number: US-MYLANLABS-2012S1000508

PATIENT
  Age: 70 Year
  Sex: Male

DRUGS (4)
  1. CARVEDILOL [Suspect]
     Route: 065
  2. VALSARTAN [Suspect]
     Route: 065
  3. INSULIN [Concomitant]
     Route: 065
  4. SPIRONOLACTONE [Suspect]
     Route: 065

REACTIONS (4)
  - HYPOTENSION [None]
  - RESPIRATORY DISTRESS [None]
  - HYPERKALAEMIA [None]
  - ATRIOVENTRICULAR BLOCK [None]
